FAERS Safety Report 11250121 (Version 1)
Quarter: 2015Q3

REPORT INFORMATION
  Report Type: Spontaneous
  Country: US (occurrence: US)
  Receive Date: 20150708
  Receipt Date: 20150708
  Transmission Date: 20151125
  Serious: No
  Sender: FDA-Public Use
  Company Number: US-ELI_LILLY_AND_COMPANY-US200905004050

PATIENT
  Sex: Male

DRUGS (1)
  1. SYMBYAX [Suspect]
     Active Substance: FLUOXETINE HYDROCHLORIDE\OLANZAPINE

REACTIONS (3)
  - Paraesthesia oral [Unknown]
  - Dizziness [Unknown]
  - Headache [Unknown]
